FAERS Safety Report 7490640-8 (Version None)
Quarter: 2011Q2

REPORT INFORMATION
  Report Type: 
  Country: None (occurrence: None)
  Receive Date: 20110519
  Receipt Date: 20110506
  Transmission Date: 20111010
  Serious: Yes (Hospitalization, Other)
  Sender: FDA-Public Use
  Company Number: US-JNJFOC-20110407345

PATIENT
  Sex: Female

DRUGS (7)
  1. TOVIAZ [Concomitant]
     Indication: INCONTINENCE
     Route: 048
  2. ABILIFY [Suspect]
     Indication: BIPOLAR DISORDER
     Route: 048
     Dates: start: 20060101
  3. TOPAMAX [Suspect]
     Indication: INTERVERTEBRAL DISC DEGENERATION
     Route: 048
     Dates: start: 20050101
  4. ATIVAN [Concomitant]
     Indication: BIPOLAR DISORDER
     Route: 048
  5. FENTANYL [Suspect]
     Indication: PAIN
     Route: 062
     Dates: start: 20000101
  6. NEURONTIN [Suspect]
     Indication: BIPOLAR DISORDER
     Route: 048
     Dates: start: 20000101
  7. LEVOTHYROXINE SODIUM [Concomitant]
     Indication: THYROID DISORDER
     Route: 048

REACTIONS (7)
  - INCORRECT DRUG ADMINISTRATION DURATION [None]
  - OBESITY [None]
  - PSORIASIS [None]
  - MULTIPLE ALLERGIES [None]
  - SLEEP DISORDER [None]
  - INTERVERTEBRAL DISC DEGENERATION [None]
  - BIPOLAR DISORDER [None]
